FAERS Safety Report 8264369-2 (Version None)
Quarter: 2012Q2

REPORT INFORMATION
  Report Type: 
  Country: None (occurrence: None)
  Receive Date: 20120403
  Receipt Date: 20120329
  Transmission Date: 20120825
  Serious: Yes (Other)
  Sender: FDA-Public Use
  Company Number: USA/USA/12/0023703

PATIENT
  Age: 14 Year
  Sex: Male

DRUGS (1)
  1. FEXOFENADINE HYDROCHLORIDE AND PSEUDOEPHEDRINE HYDROCHLORIDE EXTENDED [Suspect]
     Indication: HYPERSENSITIVITY
     Dosage: DAILY, ORAL
     Route: 048
     Dates: start: 20120322

REACTIONS (1)
  - DEPRESSION [None]
